FAERS Safety Report 21909626 (Version 1)
Quarter: 2023Q1

REPORT INFORMATION
  Report Type: Spontaneous
  Country: US (occurrence: None)
  Receive Date: 20230125
  Receipt Date: 20230125
  Transmission Date: 20230417
  Serious: Yes (Hospitalization)
  Sender: FDA-Public Use
  Company Number: None

PATIENT
  Sex: Male

DRUGS (2)
  1. OPSUMIT [Suspect]
     Active Substance: MACITENTAN
     Indication: Pulmonary arterial hypertension
     Dosage: 10MG DAILY ORAL
     Route: 048
     Dates: start: 202212
  2. ADEMPAS [Suspect]
     Active Substance: RIOCIGUAT

REACTIONS (4)
  - Hypervolaemia [None]
  - Headache [None]
  - Therapeutic product effect incomplete [None]
  - Peripheral swelling [None]
